FAERS Safety Report 10201027 (Version 1)
Quarter: 2014Q2

REPORT INFORMATION
  Report Type: Report from Study
  Country: FR (occurrence: FR)
  Receive Date: 20140528
  Receipt Date: 20140528
  Transmission Date: 20141212
  Serious: Yes (Death, Hospitalization)
  Sender: FDA-Public Use
  Company Number: PHHY2014FR064759

PATIENT
  Age: 40 Year
  Sex: Male

DRUGS (1)
  1. MYCOPHENOLIC ACID [Suspect]

REACTIONS (2)
  - Cardiac arrest [Fatal]
  - Adenocarcinoma gastric [Fatal]
